FAERS Safety Report 17705728 (Version 3)
Quarter: 2020Q3

REPORT INFORMATION
  Report Type: Spontaneous
  Country: US (occurrence: US)
  Receive Date: 20200424
  Receipt Date: 20200928
  Transmission Date: 20201102
  Serious: Yes (Other)
  Sender: FDA-Public Use
  Company Number: US-GILEAD-2020-0460486

PATIENT
  Age: 41 Year
  Sex: Male

DRUGS (2)
  1. TRUVADA [Suspect]
     Active Substance: EMTRICITABINE\TENOFOVIR DISOPROXIL FUMARATE
     Indication: HIV INFECTION
     Dosage: UNK
     Route: 048
     Dates: start: 2012, end: 2013
  2. TRUVADA [Suspect]
     Active Substance: EMTRICITABINE\TENOFOVIR DISOPROXIL FUMARATE
     Dosage: UNK
     Route: 065
     Dates: start: 20100910, end: 20130729

REACTIONS (13)
  - Acute kidney injury [Not Recovered/Not Resolved]
  - Osteoporosis [Not Recovered/Not Resolved]
  - Renal atrophy [Not Recovered/Not Resolved]
  - Ureteral stent insertion [Unknown]
  - Haematuria [Not Recovered/Not Resolved]
  - Nephrolithiasis [Not Recovered/Not Resolved]
  - Emotional distress [Unknown]
  - Foot fracture [Not Recovered/Not Resolved]
  - Bone density decreased [Not Recovered/Not Resolved]
  - Economic problem [Unknown]
  - Chronic kidney disease [Not Recovered/Not Resolved]
  - Pain [Unknown]
  - Blood creatinine increased [Unknown]

NARRATIVE: CASE EVENT DATE: 20090615
